FAERS Safety Report 8414254-8 (Version None)
Quarter: 2012Q2

REPORT INFORMATION
  Report Type: 
  Country: None (occurrence: None)
  Receive Date: 20120605
  Receipt Date: 20120521
  Transmission Date: 20120825
  Serious: No
  Sender: FDA-Public Use
  Company Number: US-ASTRAZENECA-2012SE27881

PATIENT
  Age: 49 Year
  Sex: Female

DRUGS (3)
  1. NEXIUM [Suspect]
     Route: 048
  2. SEROQUEL XR [Suspect]
     Route: 048
  3. ZANTAC [Concomitant]

REACTIONS (8)
  - FEELING ABNORMAL [None]
  - APHAGIA [None]
  - REGURGITATION [None]
  - TREMOR [None]
  - GASTROOESOPHAGEAL REFLUX DISEASE [None]
  - VOMITING [None]
  - DRUG DOSE OMISSION [None]
  - MALAISE [None]
